FAERS Safety Report 10278753 (Version 2)
Quarter: 2015Q4

REPORT INFORMATION
  Report Type: Spontaneous
  Country: BE (occurrence: BE)
  Receive Date: 20140705
  Receipt Date: 20151027
  Transmission Date: 20160304
  Serious: Yes (Death, Hospitalization, Other)
  Sender: FDA-Public Use
  Company Number: BE-ALEXION PHARMACEUTICALS INC.-A201402616

PATIENT
  Sex: Female

DRUGS (1)
  1. SOLIRIS [Suspect]
     Active Substance: ECULIZUMAB
     Indication: HAEMOLYTIC URAEMIC SYNDROME
     Dosage: UNK
     Route: 042
     Dates: start: 20140615

REACTIONS (3)
  - Cardiac arrest [Fatal]
  - Neurological decompensation [Fatal]
  - Condition aggravated [Fatal]
